FAERS Safety Report 21139485 (Version 1)
Quarter: 2022Q3

REPORT INFORMATION
  Report Type: Spontaneous
  Country: SE (occurrence: SE)
  Receive Date: 20220727
  Receipt Date: 20220727
  Transmission Date: 20221027
  Serious: Yes (Other)
  Sender: FDA-Public Use
  Company Number: SE-Millicent Holdings Ltd.-MILL20220190

PATIENT
  Age: 60 Year
  Sex: Female
  Weight: 81 kg

DRUGS (1)
  1. INTRAROSA [Suspect]
     Active Substance: PRASTERONE
     Indication: Atrophic vulvovaginitis
     Dosage: 6.5 MILLIGRAM EVERY 1 DAYS(S) AT NIGHT
     Route: 067
     Dates: start: 20220324, end: 20220424

REACTIONS (4)
  - Alopecia [Recovering/Resolving]
  - Hypertension [Recovering/Resolving]
  - Discomfort [Unknown]
  - Heart rate increased [Unknown]

NARRATIVE: CASE EVENT DATE: 20220101
